FAERS Safety Report 9391194 (Version 1)
Quarter: 2013Q3

REPORT INFORMATION
  Report Type: Spontaneous
  Country: NL (occurrence: NL)
  Receive Date: 20130709
  Receipt Date: 20130709
  Transmission Date: 20140515
  Serious: Yes (Hospitalization)
  Sender: FDA-Public Use
  Company Number: NL-B.I. PHARMACEUTICALS,INC./RIDGEFIELD-2013-NL-00477NL

PATIENT
  Age: 74 Year
  Sex: Male

DRUGS (9)
  1. PRADAXA [Suspect]
     Dates: start: 201205
  2. BISOPROLOL ACTAVIS [Suspect]
     Dosage: 2.5 MG
  3. SELOKEEN [Concomitant]
  4. PLAVIX [Concomitant]
  5. AVODART [Concomitant]
  6. ASCAL [Concomitant]
  7. LOSEC MUPS [Concomitant]
  8. CRESTOR [Concomitant]
  9. ZOFIL [Concomitant]

REACTIONS (10)
  - Respiratory tract infection [Unknown]
  - Asthenia [Unknown]
  - Asthenia [Unknown]
  - Lethargy [Unknown]
  - Oropharyngeal pain [Not Recovered/Not Resolved]
  - Fatigue [Not Recovered/Not Resolved]
  - Dyspnoea [Not Recovered/Not Resolved]
  - Rhinorrhoea [Not Recovered/Not Resolved]
  - Increased upper airway secretion [Not Recovered/Not Resolved]
  - Cough [Not Recovered/Not Resolved]
